FAERS Safety Report 9476902 (Version 2)
Quarter: 2013Q3

REPORT INFORMATION
  Report Type: Report from Study
  Country: DE (occurrence: DE)
  Receive Date: 20130826
  Receipt Date: 20130826
  Transmission Date: 20140515
  Serious: Yes (Death, Hospitalization)
  Sender: FDA-Public Use
  Company Number: DE-BRISTOL-MYERS SQUIBB COMPANY-15589039

PATIENT
  Age: 86 Year
  Sex: Male

DRUGS (14)
  1. APIXABAN [Suspect]
     Indication: THROMBOSIS PROPHYLAXIS
     Route: 048
     Dates: start: 20091105
  2. PLACEBO [Suspect]
     Indication: THROMBOSIS PROPHYLAXIS
     Route: 048
     Dates: start: 20091105
  3. ACETYLSALICYLIC ACID [Concomitant]
     Indication: THROMBOSIS PROPHYLAXIS
     Dosage: OPEN LABEL ACETYLSALICYLIC ACID UNTIL 26-DEC-2010?ALSO STOP ON 25NOV10?05NOV09-8AUG10
     Route: 048
     Dates: end: 20101226
  4. GLURENORM [Concomitant]
     Dosage: ALSO STOP 25NOV10
     Dates: end: 20101226
  5. TOREM [Concomitant]
     Dates: end: 20101226
  6. RAMIPRIL [Concomitant]
  7. INSULIN [Concomitant]
  8. PREDNISOLONE [Concomitant]
  9. OMEPRAZOL [Concomitant]
  10. CALCIUM [Concomitant]
     Dates: end: 20100912
  11. BIFITERAL [Concomitant]
     Dates: end: 20100912
  12. METHOTREXATE [Concomitant]
  13. FOLIC ACID [Concomitant]
  14. ALLOPURINOL [Concomitant]

REACTIONS (3)
  - Cardiac failure [Fatal]
  - Spinal osteoarthritis [Recovered/Resolved]
  - Pancytopenia [Recovered/Resolved]
